FAERS Safety Report 6315280-5 (Version None)
Quarter: 2009Q3

REPORT INFORMATION
  Report Type: 
  Country: None (occurrence: None)
  Receive Date: 20090819
  Receipt Date: 20090817
  Transmission Date: 20100115
  Serious: Yes (Other)
  Sender: FDA-Public Use
  Company Number: US-PFIZER INC-2009234153

PATIENT
  Sex: Female
  Weight: 64.863 kg

DRUGS (11)
  1. TIKOSYN [Suspect]
     Indication: ATRIAL FIBRILLATION
     Dosage: 250 UG, 2X/DAY
  2. XANAX [Suspect]
     Dosage: UNK
  3. PLAVIX [Concomitant]
     Dosage: UNK
  4. LEVOTHYROXINE [Concomitant]
     Dosage: UNK
  5. AVAPRO [Concomitant]
     Dosage: UNK
  6. LANTUS [Concomitant]
     Dosage: UNK
  7. NORVASC [Concomitant]
     Dosage: UNK
  8. AMARYL [Concomitant]
     Dosage: UNK
  9. ASPIRIN [Concomitant]
     Dosage: 325 MG, 2X/DAY
  10. TRICOR [Concomitant]
     Dosage: UNK
  11. CRESTOR [Concomitant]
     Dosage: UNK

REACTIONS (3)
  - ABDOMINAL NEOPLASM [None]
  - ANGINA PECTORIS [None]
  - NERVOUSNESS [None]
